FAERS Safety Report 22691880 (Version 3)
Quarter: 2023Q4

REPORT INFORMATION
  Report Type: Spontaneous
  Country: US (occurrence: US)
  Receive Date: 20230711
  Receipt Date: 20231017
  Transmission Date: 20240110
  Serious: Yes (Other)
  Sender: FDA-Public Use
  Company Number: US-JNJFOC-20230701182

PATIENT
  Age: 81 Year

DRUGS (5)
  1. TECLISTAMAB [Suspect]
     Active Substance: TECLISTAMAB
     Indication: Plasma cell myeloma
     Route: 065
     Dates: start: 20230228, end: 20230307
  2. TECLISTAMAB [Suspect]
     Active Substance: TECLISTAMAB
     Dosage: FIRST STEP UP DOSING
     Route: 065
     Dates: start: 20230228
  3. TECLISTAMAB [Suspect]
     Active Substance: TECLISTAMAB
     Dosage: ON DAY 4 SECOND STEP UP DOSING
     Route: 065
     Dates: start: 20230303
  4. TECLISTAMAB [Suspect]
     Active Substance: TECLISTAMAB
     Dosage: ON DAY-7, THIRD STEP UP DOSE
     Route: 065
     Dates: start: 20230307
  5. TECLISTAMAB [Suspect]
     Active Substance: TECLISTAMAB
     Route: 065
     Dates: end: 20230314

REACTIONS (1)
  - Immune effector cell-associated neurotoxicity syndrome [Recovered/Resolved]

NARRATIVE: CASE EVENT DATE: 20230302
